FAERS Safety Report 23335443 (Version 1)
Quarter: 2023Q4

REPORT INFORMATION
  Report Type: Spontaneous
  Country: IE (occurrence: IE)
  Receive Date: 20231225
  Receipt Date: 20231225
  Transmission Date: 20240110
  Serious: Yes (Hospitalization, Other)
  Sender: FDA-Public Use
  Company Number: IE-ABBVIE-5489862

PATIENT
  Age: 52 Year
  Sex: Female

DRUGS (2)
  1. UPADACITINIB [Suspect]
     Active Substance: UPADACITINIB
     Indication: Colitis ulcerative
     Dosage: FREQUENCY 0, 2,4
     Route: 048
     Dates: start: 20231005, end: 20231031
  2. APIXABAN [Suspect]
     Active Substance: APIXABAN
     Indication: Pulmonary embolism
     Route: 065
     Dates: start: 20231127

REACTIONS (10)
  - Pulmonary embolism [Recovered/Resolved]
  - Electrocardiogram ST-T segment abnormal [Unknown]
  - Fibrin D dimer increased [Unknown]
  - Colitis [Unknown]
  - Pallor [Unknown]
  - Colectomy [Unknown]
  - Deep vein thrombosis [Unknown]
  - Tachycardia [Unknown]
  - Dyspnoea exertional [Unknown]
  - Ileostomy [Unknown]

NARRATIVE: CASE EVENT DATE: 20230101
